FAERS Safety Report 12745579 (Version 3)
Quarter: 2016Q4

REPORT INFORMATION
  Report Type: Report from Study
  Country: JP (occurrence: JP)
  Receive Date: 20160915
  Receipt Date: 20161027
  Transmission Date: 20170207
  Serious: Yes (Hospitalization)
  Sender: FDA-Public Use
  Company Number: JP-TEVA-692523ISR

PATIENT
  Age: 74 Year
  Sex: Male

DRUGS (17)
  1. RASAGILINE MESILATE [Suspect]
     Active Substance: RASAGILINE MESYLATE
     Indication: PARKINSON^S DISEASE
     Dosage: .5 MILLIGRAM DAILY; DBPC: RASAGILINE 0.5 MG OR 1 MG OR PLACEBO
     Route: 048
     Dates: start: 20160301, end: 20160822
  2. XYLOCAINE [Concomitant]
     Active Substance: LIDOCAINE HYDROCHLORIDE
     Dosage: ONGOING
     Dates: start: 20160526
  3. HARNAL [Concomitant]
     Active Substance: TAMSULOSIN HYDROCHLORIDE
     Dosage: ONGOING
     Dates: start: 20160527
  4. DOPS [Concomitant]
     Active Substance: DROXIDOPA
     Dosage: ONGOING
     Dates: start: 20130617
  5. LOXOPROFEN SODIUM [Concomitant]
     Active Substance: LOXOPROFEN SODIUM
     Dosage: ONGOING
     Dates: start: 20160808
  6. MOHRUS L [Concomitant]
     Active Substance: KETOPROFEN
     Dosage: ONGOING
     Dates: start: 20101220
  7. NOURIAST [Concomitant]
     Active Substance: ISTRADEFYLLINE
     Dosage: ONGOING
     Dates: start: 20150630
  8. FUROSEMIDE TOWA [Concomitant]
     Dosage: ONGOING
     Dates: start: 20160527
  9. TRERIEF [Concomitant]
     Active Substance: ZONISAMIDE
     Dosage: ONGOING
     Dates: start: 20151117
  10. LANSOPRAZOLE. [Concomitant]
     Active Substance: LANSOPRAZOLE
     Dosage: ONGOING
     Dates: start: 20160808
  11. QUETIAPINE. [Concomitant]
     Active Substance: QUETIAPINE
     Dosage: ONGOING
     Dates: start: 20150727
  12. MIRAPEX [Concomitant]
     Active Substance: PRAMIPEXOLE DIHYDROCHLORIDE
     Dosage: ONGOING
     Dates: start: 20120820
  13. DICLOFENAC SODIUM. [Concomitant]
     Active Substance: DICLOFENAC SODIUM
     Dosage: ONGOING
     Dates: start: 20160721
  14. SENNOSIDE [Concomitant]
     Active Substance: SENNOSIDES
     Dosage: ONGOING
     Dates: start: 20140825
  15. STALEVO [Concomitant]
     Active Substance: CARBIDOPA\ENTACAPONE\LEVODOPA
     Dosage: ONGOING
     Dates: start: 20150202
  16. DECADRON [Concomitant]
     Active Substance: DEXAMETHASONE
     Dosage: ONGOING
     Dates: start: 20160526
  17. UBIDECARENONE [Concomitant]
     Active Substance: UBIDECARENONE
     Dosage: ONGOING
     Dates: start: 20160527

REACTIONS (1)
  - Disuse syndrome [Recovered/Resolved]

NARRATIVE: CASE EVENT DATE: 20160822
